FAERS Safety Report 9514347 (Version 2)
Quarter: 2013Q3

REPORT INFORMATION
  Report Type: Report from Study
  Country: FR (occurrence: FR)
  Receive Date: 20130911
  Receipt Date: 20130911
  Transmission Date: 20140515
  Serious: Yes (Other)
  Sender: FDA-Public Use
  Company Number: PHHY2013FR022320

PATIENT
  Age: 68 Year
  Sex: Male

DRUGS (14)
  1. NEORAL [Suspect]
     Indication: IMMUNOSUPPRESSION
     Dosage: UNK
     Dates: start: 20100814
  2. NEORAL [Suspect]
     Dosage: 100 MG, BID
     Route: 048
     Dates: start: 20110329, end: 20110503
  3. NEORAL [Suspect]
     Dosage: 175 MG, QD
     Dates: start: 20110504, end: 20110504
  4. NEORAL [Suspect]
     Dosage: 75 MG, BID
     Route: 048
     Dates: start: 20110505, end: 20120711
  5. MYCOPHENOLIC ACID [Suspect]
     Indication: IMMUNOSUPPRESSION
     Dosage: UNK
     Dates: start: 20100608, end: 20120724
  6. CERTICAN [Suspect]
     Indication: IMMUNOSUPPRESSION
     Dates: start: 20100608, end: 20100608
  7. CORTANCYL [Concomitant]
     Indication: IMMUNOSUPPRESSION
     Dosage: UNK
     Dates: start: 20100331, end: 20110706
  8. CORTANCYL [Concomitant]
     Dosage: UNK
     Dates: start: 20120713, end: 20120716
  9. CORTANCYL [Concomitant]
     Dosage: UNK
     Dates: start: 20120718
  10. CORTANCYL [Concomitant]
     Dosage: 5 MG, QD
     Route: 048
     Dates: start: 201212, end: 201301
  11. SOLUMEDROL [Concomitant]
     Indication: IMMUNOSUPPRESSION
     Dates: start: 20120707, end: 20120712
  12. SOLUMEDROL [Concomitant]
     Dosage: UNK
     Dates: start: 20120717, end: 20120717
  13. PROGRAF [Concomitant]
     Indication: IMMUNOSUPPRESSION
     Dosage: UNK
     Dates: start: 20120709, end: 20120724
  14. PROGRAF [Concomitant]
     Dosage: UNK
     Dates: start: 20120726, end: 20120727

REACTIONS (2)
  - Atrial fibrillation [Recovered/Resolved]
  - Chest pain [Recovered/Resolved]
